FAERS Safety Report 8445551-8 (Version None)
Quarter: 2012Q2

REPORT INFORMATION
  Report Type: 
  Country: None (occurrence: None)
  Receive Date: 20120323
  Receipt Date: 20111031
  Transmission Date: 20120825
  Serious: Yes (Hospitalization, Other)
  Sender: FDA-Public Use
  Company Number: 163-21880-11110050

PATIENT
  Age: 47 Year
  Sex: Male
  Weight: 72.5755 kg

DRUGS (9)
  1. SIMVASTATIN [Concomitant]
  2. ASPIRIN [Concomitant]
  3. PRILOSEC [Concomitant]
  4. REVLIMID [Suspect]
     Indication: AMYLOIDOSIS
     Dosage: 10 MG, DAILY X 21 DAYS, PO; 15 MG, DAILY X 21 DAYS, PO
     Route: 048
     Dates: start: 20110201
  5. REVLIMID [Suspect]
     Indication: AMYLOIDOSIS
     Dosage: 10 MG, DAILY X 21 DAYS, PO; 15 MG, DAILY X 21 DAYS, PO
     Route: 048
     Dates: start: 20110310, end: 20110325
  6. VITAMIN B12 [Concomitant]
  7. VELCADE [Concomitant]
  8. ACYCLOVIR [Concomitant]
  9. CELEXA [Concomitant]

REACTIONS (3)
  - URINARY TRACT INFECTION [None]
  - SEPSIS [None]
  - WHITE BLOOD CELL COUNT DECREASED [None]
